FAERS Safety Report 22367623 (Version 1)
Quarter: 2023Q2

REPORT INFORMATION
  Report Type: Spontaneous
  Country: US (occurrence: None)
  Receive Date: 20230525
  Receipt Date: 20230525
  Transmission Date: 20230722
  Serious: No
  Sender: FDA-Public Use
  Company Number: None

PATIENT

DRUGS (1)
  1. METHOTREXATE [Suspect]
     Active Substance: METHOTREXATE

REACTIONS (3)
  - Product use complaint [None]
  - Intercepted product administration error [None]
  - Overdose [None]

NARRATIVE: CASE EVENT DATE: 20230309
